FAERS Safety Report 16382432 (Version 2)
Quarter: 2019Q2

REPORT INFORMATION
  Report Type: Spontaneous
  Country: RO (occurrence: RO)
  Receive Date: 20190603
  Receipt Date: 20190613
  Transmission Date: 20190711
  Serious: Yes (Other)
  Sender: FDA-Public Use
  Company Number: RO-ROCHE-2326772

PATIENT
  Age: 63 Year
  Sex: Male

DRUGS (8)
  1. CAPECITABINE. [Suspect]
     Active Substance: CAPECITABINE
     Indication: BREAST CANCER
     Dosage: NO
     Route: 048
     Dates: start: 20180424
  2. LAPATINIB [Concomitant]
     Active Substance: LAPATINIB
     Indication: BREAST CANCER
     Dosage: NO
     Route: 065
     Dates: start: 20180424
  3. CAPECITABINE. [Suspect]
     Active Substance: CAPECITABINE
     Indication: COLON CANCER
     Route: 048
     Dates: start: 2012, end: 2012
  4. KADCYLA [Suspect]
     Active Substance: ADO-TRASTUZUMAB EMTANSINE
     Indication: BREAST CANCER METASTATIC
     Route: 042
     Dates: start: 201812
  5. HERCEPTIN [Suspect]
     Active Substance: TRASTUZUMAB
     Indication: BREAST CANCER
     Dosage: NO
     Route: 058
     Dates: start: 20171003, end: 20180331
  6. ZOLEDRONIC ACID. [Concomitant]
     Active Substance: ZOLEDRONIC ACID
     Indication: BREAST CANCER
     Dosage: YES
     Route: 065
     Dates: start: 2017
  7. TAMOXIFEN [Concomitant]
     Active Substance: TAMOXIFEN
     Indication: BREAST CANCER
     Route: 065
     Dates: start: 2017
  8. CLEXANE [Concomitant]
     Active Substance: ENOXAPARIN SODIUM
     Indication: PULMONARY EMBOLISM
     Dosage: YES
     Route: 058
     Dates: start: 201809

REACTIONS (8)
  - Sinusitis [Unknown]
  - Haemorrhoids [Unknown]
  - Horner^s syndrome [Unknown]
  - Cell death [Unknown]
  - Dyspnoea [Unknown]
  - Palmar-plantar erythrodysaesthesia syndrome [Unknown]
  - Asthenia [Unknown]
  - Pain [Unknown]

NARRATIVE: CASE EVENT DATE: 2012
